FAERS Safety Report 24155237 (Version 1)
Quarter: 2024Q3

REPORT INFORMATION
  Report Type: Spontaneous
  Country: US (occurrence: US)
  Receive Date: 20240731
  Receipt Date: 20240731
  Transmission Date: 20241016
  Serious: No
  Sender: Sintetica
  Company Number: US-SINTETICA US LLC-US-SIN-2024-00009

PATIENT
  Age: 57 Year
  Sex: Female

DRUGS (2)
  1. LIDOCAINE HYDROCHLORIDE [Suspect]
     Active Substance: LIDOCAINE HYDROCHLORIDE
     Indication: Product used for unknown indication
  2. SODIUM METABISULFITE [Suspect]
     Active Substance: SODIUM METABISULFITE
     Indication: Product used for unknown indication

REACTIONS (1)
  - Dermatitis contact [Unknown]
